FAERS Safety Report 6140120-7 (Version None)
Quarter: 2009Q1

REPORT INFORMATION
  Report Type: 
  Country: None (occurrence: None)
  Receive Date: 20090324
  Receipt Date: 20090316
  Transmission Date: 20090719
  Serious: Yes (Other)
  Sender: FDA-Public Use
  Company Number: MESA-2009-005

PATIENT
  Sex: Female

DRUGS (1)
  1. MESALAMINE [Suspect]
     Indication: GASTROINTESTINAL DISORDER
     Dosage: 4G ORAL
     Route: 048

REACTIONS (1)
  - NEPHROLITHIASIS [None]
